FAERS Safety Report 20359797 (Version 2)
Quarter: 2022Q1

REPORT INFORMATION
  Report Type: Report from Study
  Country: CA (occurrence: CA)
  Receive Date: 20220121
  Receipt Date: 20220208
  Transmission Date: 20220423
  Serious: Yes (Death, Other)
  Sender: FDA-Public Use
  Company Number: CA-BAYER-2022A010711

PATIENT

DRUGS (1)
  1. EYLEA [Suspect]
     Active Substance: AFLIBERCEPT
     Indication: Neovascular age-related macular degeneration
     Dosage: 40 MG/ML, TOTAL DOSE WAS NOT REPORTED, LAST EYLEA DOSE PRIOR THE EVENT WAS RECEIVED ON 15-DEC-2020
     Dates: start: 20200820, end: 20201215

REACTIONS (1)
  - Death [Fatal]
